FAERS Safety Report 5858181-9 (Version None)
Quarter: 2008Q3

REPORT INFORMATION
  Report Type: 
  Country: None (occurrence: None)
  Receive Date: 20080826
  Receipt Date: 20080821
  Transmission Date: 20090109
  Serious: Yes (Hospitalization, Other)
  Sender: FDA-Public Use
  Company Number: A0718700A

PATIENT
  Age: 51 Year
  Sex: Female

DRUGS (8)
  1. AVANDIA [Suspect]
     Dosage: 8MG PER DAY
     Dates: start: 20000425, end: 20070114
  2. AVANDAMET [Suspect]
     Dates: start: 20000425, end: 20070114
  3. AVANDARYL [Suspect]
     Indication: DRUG USE FOR UNKNOWN INDICATION
     Dates: start: 20040611, end: 20070114
  4. ACTOS [Concomitant]
     Dates: start: 19991112, end: 20000401
  5. HUMALOG [Concomitant]
     Dates: start: 20060920, end: 20061201
  6. INSULIN [Concomitant]
     Dates: start: 20000731
  7. AMARYL [Concomitant]
     Dates: start: 19990706, end: 20070301
  8. DIABETA [Concomitant]
     Dates: start: 19990626, end: 20030101

REACTIONS (2)
  - CARDIAC FAILURE CONGESTIVE [None]
  - MYOCARDIAL INFARCTION [None]
